FAERS Safety Report 10741197 (Version 1)
Quarter: 2015Q1

REPORT INFORMATION
  Report Type: Report from Study
  Country: JP (occurrence: JP)
  Receive Date: 20150127
  Receipt Date: 20150127
  Transmission Date: 20150721
  Serious: Yes (Death)
  Sender: FDA-Public Use
  Company Number: JP-SA-THYM-1003707

PATIENT
  Age: 11 Year
  Sex: Female
  Weight: 29 kg

DRUGS (15)
  1. TACROLIMUS. [Concomitant]
     Active Substance: TACROLIMUS
     Indication: PROPHYLAXIS AGAINST GRAFT VERSUS HOST DISEASE
     Dosage: UNK
     Route: 065
     Dates: start: 20091117
  2. FRAGMIN [Concomitant]
     Active Substance: DALTEPARIN SODIUM
     Dates: end: 20091217
  3. ACICLOVIR [Concomitant]
     Active Substance: ACYCLOVIR
     Indication: ANTIVIRAL PROPHYLAXIS
     Dosage: UNK
     Route: 065
     Dates: start: 20091111, end: 20091224
  4. MELPHALAN [Concomitant]
     Active Substance: MELPHALAN
     Indication: PRODUCT USED FOR UNKNOWN INDICATION
     Dosage: UNK
     Route: 065
     Dates: start: 20091113, end: 20091114
  5. ALKERAN [Concomitant]
     Active Substance: MELPHALAN
     Indication: PROPHYLAXIS
  6. KYTRIL [Concomitant]
     Active Substance: GRANISETRON HYDROCHLORIDE
     Dates: end: 20091124
  7. FLUDARA [Suspect]
     Active Substance: FLUDARABINE PHOSPHATE
     Dosage: 2 DOSES
     Route: 042
     Dates: start: 20091111, end: 20091116
  8. PROGRAF [Suspect]
     Active Substance: TACROLIMUS\TACROLIMUS ANHYDROUS
     Dosage: UNK
     Route: 065
     Dates: end: 20100112
  9. DALTEPARIN SODIUM [Concomitant]
     Active Substance: DALTEPARIN SODIUM
     Indication: PROPHYLAXIS
     Dosage: UNK
     Route: 065
     Dates: start: 20091110
  10. NORMAL HUMAN IMMUNOGLOBULIN [Concomitant]
     Indication: PROPHYLAXIS
     Dosage: UNK
     Route: 065
     Dates: start: 20091130, end: 20091130
  11. FLUCONAZOLE. [Concomitant]
     Active Substance: FLUCONAZOLE
     Indication: ANTIFUNGAL PROPHYLAXIS
     Dosage: UNK
     Route: 065
     Dates: start: 20091110
  12. THYMOGLOBULINE [Suspect]
     Active Substance: LAPINE T-LYMPHOCYTE IMMUNE GLOBULIN
     Indication: BONE MARROW CONDITIONING REGIMEN
     Dosage: 37.5 MG, QD
     Route: 065
     Dates: start: 20091115, end: 20091116
  13. METHYLPREDNISOLONE SODIUM SUCCINATE. [Concomitant]
     Active Substance: METHYLPREDNISOLONE SODIUM SUCCINATE
     Indication: ALLERGY PROPHYLAXIS
     Dosage: UNK
     Route: 065
     Dates: start: 20091115, end: 20091116
  14. GRANISETRON HYDROCHLORIDE. [Concomitant]
     Active Substance: GRANISETRON HYDROCHLORIDE
     Indication: PROPHYLAXIS OF NAUSEA AND VOMITING
     Dosage: UNK
     Route: 065
     Dates: start: 20091111
  15. METHOTREXATE [Concomitant]
     Active Substance: METHOTREXATE
     Indication: PROPHYLAXIS AGAINST GRAFT VERSUS HOST DISEASE
     Dosage: UNK
     Route: 065
     Dates: start: 20091119, end: 20091129

REACTIONS (2)
  - Herpes simplex [Recovered/Resolved]
  - Gastrointestinal infection [Fatal]

NARRATIVE: CASE EVENT DATE: 20091204
